FAERS Safety Report 13394280 (Version 1)
Quarter: 2017Q2

REPORT INFORMATION
  Report Type: Report from Study
  Country: EG (occurrence: EG)
  Receive Date: 20170402
  Receipt Date: 20170402
  Transmission Date: 20170830
  Serious: Yes (Hospitalization, Other)
  Sender: FDA-Public Use
  Company Number: EG-MYLANLABS-2017M1020187

PATIENT

DRUGS (1)
  1. LAMOTRIGINE. [Suspect]
     Active Substance: LAMOTRIGINE
     Indication: DYSPHEMIA
     Route: 065

REACTIONS (2)
  - Product use in unapproved indication [Unknown]
  - Stevens-Johnson syndrome [Recovered/Resolved]
